FAERS Safety Report 10158162 (Version 2)
Quarter: 2014Q2

REPORT INFORMATION
  Report Type: Report from Study
  Country: US (occurrence: US)
  Receive Date: 20140507
  Receipt Date: 20140519
  Transmission Date: 20141212
  Serious: Yes (Hospitalization)
  Sender: FDA-Public Use
  Company Number: US-ACTELION-A-NJ2014-98285

PATIENT
  Age: 62 Year
  Sex: Male

DRUGS (3)
  1. TRACLEER [Suspect]
     Indication: PULMONARY HYPERTENSION
     Dosage: 125 MG, BID
     Route: 048
     Dates: start: 20120627
  2. TRACLEER [Suspect]
     Dosage: 62.5 UNK, UNK
     Route: 048
     Dates: start: 20120527, end: 20120626
  3. COUMADIN [Suspect]

REACTIONS (1)
  - Anticoagulation drug level above therapeutic [Unknown]
